FAERS Safety Report 9227274 (Version 2)
Quarter: 2013Q2

REPORT INFORMATION
  Report Type: Report from Study
  Country: CO (occurrence: CO)
  Receive Date: 20130412
  Receipt Date: 20130426
  Transmission Date: 20140414
  Serious: Yes (Other)
  Sender: FDA-Public Use
  Company Number: PHHY2013CO035196

PATIENT
  Age: 67 Year
  Sex: Female
  Weight: 64 kg

DRUGS (3)
  1. ACLASTA [Suspect]
     Indication: OSTEOPOROSIS
     Dosage: UNK, ANUALLY
     Route: 042
     Dates: start: 20120119
  2. LEVOTHYROXINE [Concomitant]
  3. OMEPRAZOLE [Concomitant]
     Indication: GASTRITIS

REACTIONS (8)
  - Fall [Recovering/Resolving]
  - Joint injury [Recovering/Resolving]
  - Contusion [Recovering/Resolving]
  - Local swelling [Recovering/Resolving]
  - Mass [Recovering/Resolving]
  - Inflammation [Recovering/Resolving]
  - Pain in extremity [Recovering/Resolving]
  - Muscle spasms [Recovering/Resolving]
